FAERS Safety Report 4982323-0 (Version None)
Quarter: 2006Q2

REPORT INFORMATION
  Report Type: 
  Country: None (occurrence: None)
  Receive Date: 20060424
  Receipt Date: 20060424
  Transmission Date: 20061013
  Serious: Yes (Hospitalization)
  Sender: FDA-Public Use
  Company Number: None

PATIENT
  Age: 61 Year
  Sex: Male

DRUGS (1)
  1. CHLORASEPTIC LOZENGES VAPO-MINT MEDTECH PRODUCTS [Suspect]
     Dosage: 1 OR MORE LOZENGES 4 TIMES PO
     Route: 048
     Dates: start: 20060325, end: 20060325

REACTIONS (2)
  - ABSCESS [None]
  - HYPERSENSITIVITY [None]
